FAERS Safety Report 20273497 (Version 9)
Quarter: 2022Q3

REPORT INFORMATION
  Report Type: Other
  Country: GB (occurrence: None)
  Receive Date: 20220102
  Receipt Date: 20220812
  Transmission Date: 20221027
  Serious: Yes (Hospitalization)
  Sender: FDA-Public Use
  Company Number: GB-ROCHE-2888695

PATIENT
  Age: 55 Year
  Sex: Female
  Weight: 82.3 kg

DRUGS (33)
  1. ATEZOLIZUMAB [Suspect]
     Active Substance: ATEZOLIZUMAB
     Indication: Non-small cell lung cancer metastatic
     Dosage: 1200 MILLIGRAM, Q3W (1200 MG, TIW)?START DATE/END DATE OF MOST RECENT DOSE OF STUDY DRUG PRIOR TO AE
     Route: 042
     Dates: start: 20191108
  2. ATEZOLIZUMAB [Suspect]
     Active Substance: ATEZOLIZUMAB
     Indication: Small cell lung cancer
     Dosage: 1200 MILLIGRAM, Q3W (08 NOV 2019: DOSE OF LAST ATEZOLIZUMAB ADMINISTERED PRIOR TO AE ONSET)
     Route: 042
     Dates: start: 20191219
  3. ATEZOLIZUMAB [Suspect]
     Active Substance: ATEZOLIZUMAB
     Indication: Transitional cell carcinoma
     Dosage: (MOST RECENT DOSE OF ATEZOLIZUMAB PRIOR TO SAE ONSET: 08/NOV/2019 SUBSEQUENT NUMBER: 19/DEC/2019)
     Route: 042
     Dates: start: 20191108
  4. ATEZOLIZUMAB [Suspect]
     Active Substance: ATEZOLIZUMAB
     Indication: Non-small cell lung cancer
     Route: 042
  5. ATEZOLIZUMAB [Suspect]
     Active Substance: ATEZOLIZUMAB
     Route: 042
     Dates: start: 20191219
  6. BEVACIZUMAB [Suspect]
     Active Substance: BEVACIZUMAB
     Indication: Non-small cell lung cancer metastatic
     Route: 042
     Dates: start: 20191108
  7. BEVACIZUMAB [Suspect]
     Active Substance: BEVACIZUMAB
     Indication: Non-small cell lung cancer
  8. CARBOPLATIN [Suspect]
     Active Substance: CARBOPLATIN
     Indication: Non-small cell lung cancer metastatic
     Route: 042
     Dates: start: 20191108
  9. CARBOPLATIN [Suspect]
     Active Substance: CARBOPLATIN
     Indication: Non-small cell lung cancer
  10. ETOPOSIDE [Suspect]
     Active Substance: ETOPOSIDE
     Indication: Routine health maintenance
     Route: 042
     Dates: start: 20191108
  11. PACLITAXEL [Suspect]
     Active Substance: PACLITAXEL
     Indication: Non-small cell lung cancer metastatic
     Route: 042
     Dates: start: 20191108
  12. PACLITAXEL [Suspect]
     Active Substance: PACLITAXEL
     Indication: Non-small cell lung cancer
  13. VENLAFAXINE [Concomitant]
     Active Substance: VENLAFAXINE HYDROCHLORIDE
     Route: 048
     Dates: start: 20191126
  14. PIPERACILLIN SODIUM\TAZOBACTAM SODIUM [Concomitant]
     Active Substance: PIPERACILLIN SODIUM\TAZOBACTAM SODIUM
  15. ONDANSETRON [Concomitant]
     Active Substance: ONDANSETRON
     Dates: start: 20191108, end: 20191108
  16. AFATINIB [Concomitant]
     Active Substance: AFATINIB
     Indication: Neoplasm malignant
  17. ACETAMINOPHEN [Concomitant]
     Active Substance: ACETAMINOPHEN
     Indication: Analgesic therapy
     Route: 048
     Dates: start: 20191126
  18. ACETAMINOPHEN [Concomitant]
     Active Substance: ACETAMINOPHEN
     Indication: Hypoaesthesia
  19. ACETAMINOPHEN [Concomitant]
     Active Substance: ACETAMINOPHEN
     Indication: Chest pain
  20. SITAGLIPTIN [Concomitant]
     Active Substance: SITAGLIPTIN
     Indication: Hypoaesthesia
     Route: 048
     Dates: start: 20191126
  21. SITAGLIPTIN [Concomitant]
     Active Substance: SITAGLIPTIN
     Indication: Chest pain
  22. FENTANYL [Concomitant]
     Active Substance: FENTANYL
     Indication: Analgesic therapy
     Route: 048
     Dates: start: 20191126
  23. FENTANYL [Concomitant]
     Active Substance: FENTANYL
     Indication: Hypoaesthesia
  24. FENTANYL [Concomitant]
     Active Substance: FENTANYL
     Indication: Chest pain
  25. AMOXICILLIN\CLAVULANIC ACID [Concomitant]
     Active Substance: AMOXICILLIN\CLAVULANIC ACID
     Indication: Hypoaesthesia
     Route: 048
     Dates: start: 20191121, end: 20191126
  26. AMOXICILLIN\CLAVULANIC ACID [Concomitant]
     Active Substance: AMOXICILLIN\CLAVULANIC ACID
     Indication: Chest pain
  27. OMEPRAZOLE [Concomitant]
     Active Substance: OMEPRAZOLE
     Indication: Chest pain
     Route: 048
     Dates: start: 20191126
  28. IBUPROFEN [Concomitant]
     Active Substance: IBUPROFEN
     Indication: Analgesic therapy
     Route: 048
     Dates: start: 20191126
  29. IBUPROFEN [Concomitant]
     Active Substance: IBUPROFEN
     Indication: Hypoaesthesia
  30. IBUPROFEN [Concomitant]
     Active Substance: IBUPROFEN
     Indication: Chest pain
  31. METFORMIN [Concomitant]
     Active Substance: METFORMIN HYDROCHLORIDE
     Indication: Hyperglycaemia
     Dosage: 1 G BID
     Route: 048
     Dates: start: 20191126
  32. METFORMIN [Concomitant]
     Active Substance: METFORMIN HYDROCHLORIDE
     Indication: Hypoaesthesia
     Dosage: 2 GRAM, QD, THERAPY END DATE: NASK
     Route: 048
     Dates: start: 20191126
  33. METFORMIN [Concomitant]
     Active Substance: METFORMIN HYDROCHLORIDE
     Indication: Chest pain
     Dosage: 2 GRAM DAILY; 2 GRAM, QD
     Route: 048
     Dates: start: 20191126

REACTIONS (9)
  - Chest pain [Recovered/Resolved]
  - Fatigue [Not Recovered/Not Resolved]
  - Alopecia [Not Recovered/Not Resolved]
  - Night sweats [Not Recovered/Not Resolved]
  - Epistaxis [Recovered/Resolved]
  - Hypoaesthesia [Not Recovered/Not Resolved]
  - Pyrexia [Recovered/Resolved]
  - Dyspnoea [Not Recovered/Not Resolved]
  - Muscular weakness [Not Recovered/Not Resolved]

NARRATIVE: CASE EVENT DATE: 20191108
